FAERS Safety Report 6786666-X (Version None)
Quarter: 2010Q2

REPORT INFORMATION
  Report Type: 
  Country: None (occurrence: None)
  Receive Date: 20100623
  Receipt Date: 20100621
  Transmission Date: 20101027
  Serious: Yes (Hospitalization)
  Sender: FDA-Public Use
  Company Number: FR-SANOFI-AVENTIS-2010SA035529

PATIENT
  Age: 51 Year
  Sex: Female

DRUGS (12)
  1. TAXOTERE [Suspect]
     Route: 042
     Dates: start: 20100520, end: 20100520
  2. CORTANCYL [Suspect]
     Route: 048
     Dates: start: 20100520, end: 20100522
  3. TRASTUZUMAB [Suspect]
     Route: 042
     Dates: start: 20100520, end: 20100520
  4. PRETERAX [Suspect]
     Route: 048
     Dates: start: 20100518, end: 20100527
  5. ZOPHREN [Suspect]
     Route: 042
     Dates: start: 20100520, end: 20100521
  6. SOLU-MEDROL [Suspect]
     Route: 042
     Dates: start: 20100520, end: 20100522
  7. RANIPLEX [Suspect]
     Route: 048
     Dates: start: 20100520, end: 20100520
  8. LEVOTHYROXINE SODIUM [Concomitant]
     Dates: start: 20040101
  9. VENTOLIN [Concomitant]
     Dates: start: 19800101
  10. POLARAMINE [Concomitant]
     Dates: start: 20100520
  11. INIPOMP [Concomitant]
     Dates: start: 20100520
  12. GYNO-PEVARYL [Concomitant]
     Dates: start: 20100521

REACTIONS (1)
  - ACUTE GENERALISED EXANTHEMATOUS PUSTULOSIS [None]
